FAERS Safety Report 6379615-X (Version None)
Quarter: 2009Q3

REPORT INFORMATION
  Report Type: 
  Country: None (occurrence: None)
  Receive Date: 20090924
  Receipt Date: 20090924
  Transmission Date: 20100115
  Serious: Yes (Other)
  Sender: FDA-Public Use
  Company Number: None

PATIENT
  Age: 48 Year
  Sex: Female
  Weight: 60 kg

DRUGS (2)
  1. TOPAMAX [Suspect]
     Indication: MIGRAINE
     Dosage: 25MG ONCE A DAY 7 DAYS PO;  25MG BD 3 DAYS PO
     Route: 048
     Dates: start: 20090825, end: 20090901
  2. TOPAMAX [Suspect]
     Indication: MIGRAINE
     Dosage: 25MG ONCE A DAY 7 DAYS PO;  25MG BD 3 DAYS PO
     Route: 048
     Dates: start: 20090901, end: 20090906

REACTIONS (1)
  - TACHYCARDIA [None]
